FAERS Safety Report 4777257-0 (Version None)
Quarter: 2005Q3

REPORT INFORMATION
  Report Type: 
  Country: None (occurrence: None)
  Receive Date: 20050923
  Receipt Date: 20050913
  Transmission Date: 20060218
  Serious: Yes (Other)
  Sender: FDA-Public Use
  Company Number: 2005SE05267

PATIENT
  Age: 58 Year
  Sex: Female
  Weight: 67 kg

DRUGS (2)
  1. METOPROLOL SUCCINATE [Suspect]
     Indication: PROPHYLAXIS
     Route: 048
     Dates: start: 19901001, end: 20020301
  2. ASPIRIN [Concomitant]
     Indication: PROPHYLAXIS
     Dates: start: 19901001

REACTIONS (7)
  - ADRENAL CARCINOMA [None]
  - CARDIAC FAILURE [None]
  - DISTURBANCE IN ATTENTION [None]
  - EJECTION FRACTION DECREASED [None]
  - ONYCHOMADESIS [None]
  - PSORIASIS [None]
  - VISUAL ACUITY REDUCED [None]
